FAERS Safety Report 23133793 (Version 2)
Quarter: 2023Q4

REPORT INFORMATION
  Report Type: Other
  Country: EG (occurrence: EG)
  Receive Date: 20231101
  Receipt Date: 20231110
  Transmission Date: 20240110
  Serious: Yes (Life-Threatening, Hospitalization)
  Sender: FDA-Public Use
  Company Number: EG-002147023-NVSC2023EG231800

PATIENT
  Age: 30 Year
  Sex: Female

DRUGS (2)
  1. XOLAIR [Suspect]
     Active Substance: OMALIZUMAB
     Indication: Asthma
     Dosage: 1 DOSAGE FORM (INJECTION), QMO (EVERY MONTH UPON HER OWN DECISION)
     Route: 058
     Dates: start: 202302
  2. XOLAIR [Suspect]
     Active Substance: OMALIZUMAB
     Indication: Angioedema

REACTIONS (5)
  - Angioedema [Unknown]
  - Anaphylactic shock [Recovered/Resolved]
  - Pyrexia [Recovered/Resolved]
  - Incorrect dose administered [Unknown]
  - Off label use [Unknown]

NARRATIVE: CASE EVENT DATE: 20230201
